FAERS Safety Report 19213156 (Version 1)
Quarter: 2021Q2

REPORT INFORMATION
  Report Type: Spontaneous
  Country: US (occurrence: US)
  Receive Date: 20210504
  Receipt Date: 20210504
  Transmission Date: 20210717
  Serious: No
  Sender: FDA-Public Use
  Company Number: US-VER-202100004

PATIENT
  Age: 77 Year
  Sex: Male

DRUGS (2)
  1. TRELSTAR [Suspect]
     Active Substance: TRIPTORELIN PAMOATE
     Indication: PROSTATE CANCER
     Dosage: 2 TIMES A YEAR
     Route: 065
     Dates: start: 2014
  2. BICALUTAMIDE. [Concomitant]
     Active Substance: BICALUTAMIDE
     Route: 065

REACTIONS (3)
  - Accidental underdose [Unknown]
  - Product administration error [Unknown]
  - Product physical consistency issue [Unknown]

NARRATIVE: CASE EVENT DATE: 202101
